FAERS Safety Report 9705601 (Version 2)
Quarter: 2013Q4

REPORT INFORMATION
  Report Type: Report from Study
  Country: US (occurrence: US)
  Receive Date: 20131122
  Receipt Date: 20131205
  Transmission Date: 20140711
  Serious: Yes (Other)
  Sender: FDA-Public Use
  Company Number: US-US-EMD SERONO, INC.-7250954

PATIENT
  Sex: Female

DRUGS (3)
  1. REBIF [Suspect]
     Indication: PRODUCT USED FOR UNKNOWN INDICATION
     Dates: start: 20130911
  2. REBIF [Suspect]
     Route: 058
  3. REBIF [Suspect]
     Dates: start: 20131120

REACTIONS (2)
  - Mood swings [Recovered/Resolved]
  - Suicidal ideation [Recovered/Resolved]
